FAERS Safety Report 5066190-5 (Version None)
Quarter: 2006Q3

REPORT INFORMATION
  Report Type: 
  Country: None (occurrence: None)
  Receive Date: 20060703
  Receipt Date: 20060324
  Transmission Date: 20061208
  Serious: No
  Sender: FDA-Public Use
  Company Number: ENTC2004-0158

PATIENT
  Age: 81 Year
  Sex: Female

DRUGS (2)
  1. STALEVO 50 [Suspect]
     Indication: PARKINSON'S DISEASE
     Dosage: SEE IMAGE
     Route: 048
     Dates: start: 20040601
  2. STALEVO 50 [Suspect]
     Indication: PARKINSON'S DISEASE
     Dosage: SEE IMAGE
     Route: 048
     Dates: start: 20060101

REACTIONS (3)
  - BACK PAIN [None]
  - HEADACHE [None]
  - MYALGIA [None]
